FAERS Safety Report 16381347 (Version 3)
Quarter: 2019Q3

REPORT INFORMATION
  Report Type: Report from Study
  Country: JP (occurrence: JP)
  Receive Date: 20190603
  Receipt Date: 20190827
  Transmission Date: 20191004
  Serious: Yes (Disabling, Other)
  Sender: FDA-Public Use
  Company Number: JP-BEH-2019102962

PATIENT
  Age: 80 Year
  Sex: Male
  Weight: 51 kg

DRUGS (20)
  1. TRANEXAMIC ACID. [Concomitant]
     Active Substance: TRANEXAMIC ACID
     Indication: HAEMORRHAGE
     Dosage: UNK
     Route: 065
     Dates: end: 20180425
  2. CARBAZOCHROME SODIUM SULFONATE [Concomitant]
     Active Substance: CARBAZOCHROME SODIUM SULFONATE
     Dosage: UNK
     Route: 065
     Dates: end: 20180425
  3. FAMOTIDINE. [Concomitant]
     Active Substance: FAMOTIDINE
     Indication: UPPER GASTROINTESTINAL HAEMORRHAGE
     Dosage: UNK
     Route: 065
     Dates: end: 20180427
  4. KAYTWO N [Concomitant]
     Active Substance: MENATETRENONE
     Indication: ANTICOAGULANT THERAPY
     Dosage: 20 MG, QD
     Route: 065
     Dates: start: 20180424, end: 20180424
  5. MIDAZOLAM [Concomitant]
     Active Substance: MIDAZOLAM HYDROCHLORIDE
     Indication: POSTOPERATIVE CARE
     Dosage: UNK
     Route: 065
     Dates: start: 20180424, end: 20180425
  6. BERIPLEX P/N [Suspect]
     Active Substance: COAGULATION FACTOR IX HUMAN\COAGULATION FACTOR VII HUMAN\COAGULATION FACTOR X HUMAN\PROTEIN C\PROTEIN S HUMAN\PROTHROMBIN
     Indication: SURGERY
     Dosage: UNK
     Route: 042
     Dates: start: 20180424, end: 20180424
  7. BERIPLEX P/N [Suspect]
     Active Substance: COAGULATION FACTOR IX HUMAN\COAGULATION FACTOR VII HUMAN\COAGULATION FACTOR X HUMAN\PROTEIN C\PROTEIN S HUMAN\PROTHROMBIN
     Dosage: 1250 IU, UNK
     Route: 042
     Dates: start: 20180424
  8. FOSTOIN [Concomitant]
     Active Substance: FOSPHENYTOIN SODIUM
     Indication: PRODUCT USED FOR UNKNOWN INDICATION
     Dosage: UNK
     Route: 050
     Dates: start: 20180424, end: 20180426
  9. METOCLOPRAMIDE                     /00041902/ [Concomitant]
     Active Substance: METOCLOPRAMIDE HYDROCHLORIDE
     Dosage: UNK
     Route: 065
     Dates: end: 20180424
  10. CEFAZOLIN SODIUM. [Concomitant]
     Active Substance: CEFAZOLIN SODIUM
     Indication: PROPHYLAXIS
     Dosage: UNK
     Route: 065
     Dates: start: 20180424, end: 20180425
  11. CEFOCEF [CEFOPERAZONE SODIUM;SULBACTAM SODIUM] [Concomitant]
     Dosage: UNK
     Route: 065
     Dates: start: 20180501, end: 20180503
  12. BERIPLEX P/N [Suspect]
     Active Substance: COAGULATION FACTOR IX HUMAN\COAGULATION FACTOR VII HUMAN\COAGULATION FACTOR X HUMAN\PROTEIN C\PROTEIN S HUMAN\PROTHROMBIN
     Indication: SURGERY
     Dosage: UNK
     Route: 042
     Dates: start: 20180424, end: 20180424
  13. BERIPLEX P/N [Suspect]
     Active Substance: COAGULATION FACTOR IX HUMAN\COAGULATION FACTOR VII HUMAN\COAGULATION FACTOR X HUMAN\PROTEIN C\PROTEIN S HUMAN\PROTHROMBIN
     Dosage: 1250 IU, UNK
     Route: 042
     Dates: start: 20180424
  14. WARFARIN                           /00014803/ [Concomitant]
     Active Substance: WARFARIN
     Indication: ATRIAL FIBRILLATION
     Dosage: 1 MILLIGRAM
     Route: 048
     Dates: end: 20180424
  15. SOSEGON                            /00052101/ [Concomitant]
     Active Substance: PENTAZOCINE
     Indication: ANALGESIC THERAPY
     Dosage: UNK
     Route: 065
     Dates: end: 20180424
  16. BERIPLEX P/N [Suspect]
     Active Substance: COAGULATION FACTOR IX HUMAN\COAGULATION FACTOR VII HUMAN\COAGULATION FACTOR X HUMAN\PROTEIN C\PROTEIN S HUMAN\PROTHROMBIN
     Dosage: UNK
     Route: 042
     Dates: start: 20180424, end: 20180424
  17. WARFARIN                           /00014803/ [Concomitant]
     Active Substance: WARFARIN
     Indication: PROPHYLAXIS
     Dosage: 1 MILLIGRAM
     Route: 048
     Dates: start: 20180428
  18. KEPPRA [Concomitant]
     Active Substance: LEVETIRACETAM
     Dosage: UNK
     Route: 048
     Dates: start: 20180426
  19. BERIPLEX P/N [Suspect]
     Active Substance: COAGULATION FACTOR IX HUMAN\COAGULATION FACTOR VII HUMAN\COAGULATION FACTOR X HUMAN\PROTEIN C\PROTEIN S HUMAN\PROTHROMBIN
     Dosage: UNK
     Route: 042
     Dates: start: 20180424, end: 20180424
  20. PICOSULFATE NA [Concomitant]
     Active Substance: SODIUM PICOSULFATE
     Dosage: UNK
     Route: 048
     Dates: start: 20180430, end: 20180430

REACTIONS (3)
  - Cholecystitis [Recovered/Resolved]
  - Hepatic function abnormal [Not Recovered/Not Resolved]
  - Cholelithiasis [Recovered/Resolved]

NARRATIVE: CASE EVENT DATE: 20180429
